FAERS Safety Report 8589771-0 (Version None)
Quarter: 2012Q3

REPORT INFORMATION
  Report Type: 
  Country: None (occurrence: None)
  Receive Date: 20120813
  Receipt Date: 20120802
  Transmission Date: 20120928
  Serious: Yes (Death, Hospitalization)
  Sender: FDA-Public Use
  Company Number: JP-ASTRAZENECA-2012SE55850

PATIENT
  Age: 86 Year
  Sex: Female
  Weight: 47 kg

DRUGS (12)
  1. DEPAS [Concomitant]
     Indication: INSOMNIA
     Route: 048
     Dates: start: 20100807
  2. URSO 250 [Concomitant]
     Indication: CHOLELITHIASIS
     Route: 048
     Dates: start: 20070302
  3. HALFDIGOXIN KY [Concomitant]
     Indication: CARDIAC FAILURE CONGESTIVE
     Route: 048
     Dates: start: 20100403
  4. MUCOSTA [Concomitant]
     Indication: GASTRITIS
     Route: 048
     Dates: start: 20100403
  5. RINGEREAZE [Concomitant]
     Indication: CERVICOBRACHIAL SYNDROME
     Route: 048
     Dates: start: 20100403
  6. NORVASC [Concomitant]
     Route: 048
     Dates: start: 20100403
  7. CRESTOR [Concomitant]
     Indication: DYSLIPIDAEMIA
     Route: 048
     Dates: start: 20070302
  8. ZOLPIDEM [Concomitant]
     Indication: INSOMNIA
     Route: 048
     Dates: start: 20100807
  9. CANDESARTAN CILEXETIL [Suspect]
     Indication: HYPERTENSION
     Route: 048
     Dates: start: 20100403, end: 20110923
  10. GANATON [Concomitant]
     Indication: GASTRITIS
     Route: 048
     Dates: start: 20100403
  11. NORVASC [Concomitant]
     Indication: HYPERTENSION
     Route: 048
     Dates: start: 20090206, end: 20100402
  12. MOTONALIN [Concomitant]
     Indication: CERVICOBRACHIAL SYNDROME
     Route: 048
     Dates: start: 20100403

REACTIONS (1)
  - INTERSTITIAL LUNG DISEASE [None]
